FAERS Safety Report 4442491-6 (Version None)
Quarter: 2004Q3

REPORT INFORMATION
  Report Type: 
  Country: None (occurrence: None)
  Receive Date: 20040903
  Receipt Date: 20040709
  Transmission Date: 20050211
  Serious: Yes (Other)
  Sender: FDA-Public Use
  Company Number: 2004UW14288

PATIENT
  Age: 77 Year
  Sex: Male
  Weight: 79.8331 kg

DRUGS (5)
  1. CRESTOR [Suspect]
     Indication: BLOOD CHOLESTEROL INCREASED
  2. PROSCAR [Concomitant]
  3. ATENOLOL [Concomitant]
  4. SYNTHROID [Concomitant]
  5. ASPIRIN [Concomitant]

REACTIONS (1)
  - RECTAL HAEMORRHAGE [None]
